FAERS Safety Report 10681636 (Version 3)
Quarter: 2015Q1

REPORT INFORMATION
  Report Type: Spontaneous
  Country: US (occurrence: US)
  Receive Date: 20141230
  Receipt Date: 20150209
  Transmission Date: 20150720
  Serious: Yes (Other)
  Sender: FDA-Public Use
  Company Number: US-UNITED THERAPEUTICS-UNT-2014-008388

PATIENT
  Age: 61 Year
  Sex: Female
  Weight: 54.42 kg

DRUGS (4)
  1. ADCIRCA [Concomitant]
     Active Substance: TADALAFIL
     Indication: PRODUCT USED FOR UNKNOWN INDICATION
  2. REMODULIN [Suspect]
     Active Substance: TREPROSTINIL
     Dosage: 0.02 ?G/KG, CONTINUING
     Route: 058
     Dates: start: 20140514
  3. REMODULIN [Suspect]
     Active Substance: TREPROSTINIL
     Indication: COR PULMONALE CHRONIC
     Dosage: 0.02 ?G/KG, CONTINUING
     Route: 058
     Dates: start: 20140514
  4. REMODULIN [Suspect]
     Active Substance: TREPROSTINIL
     Indication: PULMONARY HYPERTENSION
     Dosage: 0.016 ?G/KG, CONTINUING
     Route: 058

REACTIONS (15)
  - Dysentery [Unknown]
  - Nausea [Unknown]
  - Overdose [Unknown]
  - Device issue [Unknown]
  - Cellulitis [Unknown]
  - Visual impairment [Unknown]
  - Infusion site cellulitis [Unknown]
  - Diarrhoea [Unknown]
  - Dizziness [Unknown]
  - Infusion site infection [Unknown]
  - Infusion site pain [Unknown]
  - Drug dose omission [Unknown]
  - Infusion site erythema [Unknown]
  - Infusion site induration [Unknown]
  - Fatigue [Unknown]

NARRATIVE: CASE EVENT DATE: 2014
